FAERS Safety Report 8483040 (Version 7)
Quarter: 2013Q4

REPORT INFORMATION
  Report Type: Report from Study
  Country: US (occurrence: US)
  Receive Date: 20120329
  Receipt Date: 20131231
  Transmission Date: 20140711
  Serious: Yes (Hospitalization)
  Sender: FDA-Public Use
  Company Number: US-JNJFOC-20110709581

PATIENT
  Age: 71 Year
  Sex: Female
  Weight: 86.18 kg

DRUGS (22)
  1. GOLIMUMAB [Suspect]
     Route: 058
  2. GOLIMUMAB [Suspect]
     Indication: RHEUMATOID ARTHRITIS
     Route: 058
     Dates: start: 20091228, end: 20110615
  3. DILTIAZEM [Concomitant]
     Indication: HYPERTENSION
     Route: 048
  4. LEVOTHYROXINE [Concomitant]
     Indication: HYPOTHYROIDISM
     Route: 048
  5. METOCLOPRAMIDE [Concomitant]
     Indication: HYPERTENSION
     Route: 048
  6. ALTACE [Concomitant]
     Indication: HYPERTENSION
     Route: 048
     Dates: start: 200906
  7. KLOR-CON [Concomitant]
     Indication: NUTRITIONAL SUPPLEMENTATION
     Route: 048
  8. CALCIUM [Concomitant]
     Indication: NUTRITIONAL SUPPLEMENTATION
     Route: 048
  9. FISH OIL [Concomitant]
     Indication: NUTRITIONAL SUPPLEMENTATION
     Route: 048
  10. FOLIC ACID [Concomitant]
     Indication: NUTRITIONAL SUPPLEMENTATION
     Route: 048
  11. METFORMIN [Concomitant]
     Indication: DIABETES MELLITUS
     Route: 048
  12. NEXIUM [Concomitant]
     Indication: GASTROOESOPHAGEAL REFLUX DISEASE
     Route: 048
     Dates: start: 200906
  13. ULTRAM [Concomitant]
     Indication: RHEUMATOID ARTHRITIS
     Route: 048
     Dates: start: 20110113
  14. INSULIN [Concomitant]
     Indication: RHEUMATOID ARTHRITIS
     Route: 058
     Dates: start: 20110120
  15. JANUVIA [Concomitant]
     Route: 048
     Dates: start: 20110504
  16. VYTORIN [Concomitant]
     Indication: HYPERLIPIDAEMIA
     Dosage: 10 MG/40 MG
     Route: 048
  17. GABAPENTIN [Concomitant]
     Indication: DIABETIC NEUROPATHY
     Route: 048
  18. GLYBURIDE [Concomitant]
     Indication: DIABETES MELLITUS
     Route: 048
     Dates: start: 20110607
  19. METHOTREXATE [Concomitant]
     Indication: RHEUMATOID ARTHRITIS
     Route: 048
     Dates: start: 20071015
  20. LASIX [Concomitant]
  21. LOTENSIN HCTZ [Concomitant]
     Dosage: 20 MG/25 MG
  22. PERIACTIN [Concomitant]

REACTIONS (1)
  - Cellulitis [Recovered/Resolved with Sequelae]
